FAERS Safety Report 14165674 (Version 2)
Quarter: 2017Q4

REPORT INFORMATION
  Report Type: Spontaneous
  Country: US (occurrence: US)
  Receive Date: 20171107
  Receipt Date: 20171116
  Transmission Date: 20180321
  Serious: Yes (Hospitalization, Other)
  Sender: FDA-Public Use
  Company Number: US-AUROBINDO-AUR-APL-2017-43297

PATIENT
  Age: 16 Year
  Sex: Female

DRUGS (1)
  1. NORGESTIMATE+ETHINYL ESTRADIOL [Suspect]
     Active Substance: ETHINYL ESTRADIOL\NORGESTIMATE
     Indication: ACNE

REACTIONS (8)
  - Presyncope [Recovered/Resolved]
  - Thrombosis [Recovered/Resolved]
  - Flank pain [Recovered/Resolved]
  - Hyperhidrosis [Recovered/Resolved]
  - Pulmonary embolism [Recovered/Resolved]
  - Dyspnoea [Recovered/Resolved]
  - Chest pain [Recovered/Resolved]
  - Respiratory distress [Recovered/Resolved]
